FAERS Safety Report 9068570 (Version 1)
Quarter: 2013Q1

REPORT INFORMATION
  Report Type: Spontaneous
  Country: US (occurrence: None)
  Receive Date: 20130212
  Receipt Date: 20130212
  Transmission Date: 20140127
  Serious: No
  Sender: FDA-Public Use
  Company Number: None

PATIENT
  Age: 56 Year
  Sex: Female

DRUGS (1)
  1. VIREAD [Suspect]
     Indication: HEPATITIS B
     Dosage: 300MG  DAILY  PO
     Route: 048
     Dates: start: 20120401

REACTIONS (3)
  - Dyspnoea [None]
  - Fatigue [None]
  - Lip oedema [None]
